FAERS Safety Report 11733573 (Version 1)
Quarter: 2015Q4

REPORT INFORMATION
  Report Type: Spontaneous
  Country: US (occurrence: US)
  Receive Date: 20151110
  Receipt Date: 20151110
  Transmission Date: 20160304
  Serious: No
  Sender: FDA-Public Use
  Company Number: US-ELI_LILLY_AND_COMPANY-US201205007051

PATIENT
  Sex: Female

DRUGS (1)
  1. FORTEO [Suspect]
     Active Substance: TERIPARATIDE
     Indication: OSTEOPENIA
     Dosage: 20 UG, QD
     Route: 065

REACTIONS (6)
  - Malaise [Unknown]
  - Intentional product misuse [Not Recovered/Not Resolved]
  - Balance disorder [Unknown]
  - Visual field defect [Unknown]
  - Off label use [Recovered/Resolved]
  - Injection site erythema [Not Recovered/Not Resolved]
